FAERS Safety Report 8806477 (Version 2)
Quarter: 2012Q4

REPORT INFORMATION
  Report Type: Spontaneous
  Country: US (occurrence: None)
  Receive Date: 20120918
  Receipt Date: 20121002
  Transmission Date: 20130627
  Serious: Yes (Other)
  Sender: FDA-Public Use
  Company Number: AUR-APL-2012-03920

PATIENT
  Age: 37 Year
  Sex: Female
  Weight: 49.9 kg

DRUGS (1)
  1. CIPROFLOXACIN (CIPROFLOXACIN) [Suspect]
     Indication: TYPE 2 DIABETES MELLITUS

REACTIONS (32)
  - Tendon pain [None]
  - Inflammation [None]
  - Muscular weakness [None]
  - Malaise [None]
  - Nausea [None]
  - Night sweats [None]
  - Heart rate increased [None]
  - Heart rate irregular [None]
  - Mucosal dryness [None]
  - Nervous system disorder [None]
  - Pain in extremity [None]
  - Condition aggravated [None]
  - Disturbance in attention [None]
  - Anxiety [None]
  - Depression [None]
  - Arthralgia [None]
  - Arthropathy [None]
  - Oral candidiasis [None]
  - Dysstasia [None]
  - Pain [None]
  - Dyspnoea [None]
  - Food allergy [None]
  - Diarrhoea [None]
  - Quality of life decreased [None]
  - Neuropathy peripheral [None]
  - Weight decreased [None]
  - Insomnia [None]
  - Arthralgia [None]
  - Arthralgia [None]
  - Hypopnoea [None]
  - Sleep apnoea syndrome [None]
  - Confusional state [None]
